FAERS Safety Report 10669818 (Version 4)
Quarter: 2015Q1

REPORT INFORMATION
  Report Type: Report from Study
  Country: US (occurrence: US)
  Receive Date: 20141222
  Receipt Date: 20150120
  Transmission Date: 20150720
  Serious: Yes (Hospitalization)
  Sender: FDA-Public Use
  Company Number: US-ACTELION-A-US2013-82199

PATIENT
  Age: 35 Year
  Sex: Female

DRUGS (2)
  1. VELETRI [Suspect]
     Active Substance: EPOPROSTENOL
     Dosage: 76 NG, PER MIN
     Route: 042
  2. VELETRI [Suspect]
     Active Substance: EPOPROSTENOL
     Indication: PULMONARY ARTERIAL HYPERTENSION
     Dosage: 76.5 NG/KG, PER MIN
     Route: 042
     Dates: start: 20130325

REACTIONS (11)
  - Nausea [Unknown]
  - Pain in extremity [Unknown]
  - Gastrointestinal disorder [Unknown]
  - Diarrhoea [Unknown]
  - Abdominal pain [Unknown]
  - Feeling cold [Unknown]
  - Clostridium difficile infection [Unknown]
  - Back pain [Unknown]
  - Vomiting [Unknown]
  - Pain in jaw [Unknown]
  - Bone pain [Unknown]

NARRATIVE: CASE EVENT DATE: 20141211
